FAERS Safety Report 5669988-5 (Version None)
Quarter: 2008Q1

REPORT INFORMATION
  Report Type: 
  Country: None (occurrence: None)
  Receive Date: 20080317
  Receipt Date: 20080312
  Transmission Date: 20080703
  Serious: Yes (Other)
  Sender: FDA-Public Use
  Company Number: US-BOEHRINGER INGELHEIM GMBH, GERMANY-2008-BP-03819RO

PATIENT
  Age: 37 Year
  Sex: Female

DRUGS (6)
  1. PREDNISONE TAB [Suspect]
     Indication: IMMUNOSUPPRESSION
  2. TACROLIMUS [Suspect]
     Indication: IMMUNOSUPPRESSION
  3. MYCOPHENOLIC ACID [Suspect]
     Indication: IMMUNOSUPPRESSION
  4. IMIQUIMOD [Concomitant]
  5. TAZAROTENE [Concomitant]
     Route: 061
  6. VALGANCICLOVIR HCL [Concomitant]
     Indication: EVIDENCE BASED TREATMENT

REACTIONS (2)
  - ALOPECIA [None]
  - TRICHOSTASIS SPINULOSA [None]
